FAERS Safety Report 7583832-0 (Version None)
Quarter: 2011Q2

REPORT INFORMATION
  Report Type: 
  Country: None (occurrence: None)
  Receive Date: 20110630
  Receipt Date: 20110622
  Transmission Date: 20111010
  Serious: Yes (Other)
  Sender: FDA-Public Use
  Company Number: FR-TEVA-288030ISR

PATIENT
  Sex: Male

DRUGS (1)
  1. VINCRISTINE [Suspect]
     Indication: GLIOMA
     Dosage: .2125 MILLIGRAM;
     Route: 040
     Dates: start: 20101109, end: 20101116

REACTIONS (5)
  - ALANINE AMINOTRANSFERASE INCREASED [None]
  - HEPATITIS C ANTIBODY POSITIVE [None]
  - ASPARTATE AMINOTRANSFERASE INCREASED [None]
  - ANTI-HBS ANTIBODY POSITIVE [None]
  - TRANSAMINASES INCREASED [None]
